FAERS Safety Report 5671500-1 (Version None)
Quarter: 2008Q1

REPORT INFORMATION
  Report Type: 
  Country: None (occurrence: None)
  Receive Date: 20080318
  Receipt Date: 20080318
  Transmission Date: 20080703
  Serious: Yes (Hospitalization)
  Sender: FDA-Public Use
  Company Number: US-BOEHRINGER INGELHEIM GMBH, GERMANY-2008-BP-03606BP

PATIENT
  Age: 92 Year
  Sex: Female

DRUGS (1)
  1. MICARDIS HCT [Suspect]
     Dates: start: 20060101, end: 20060101

REACTIONS (1)
  - DEHYDRATION [None]
